FAERS Safety Report 15702027 (Version 1)
Quarter: 2018Q4

REPORT INFORMATION
  Report Type: Spontaneous
  Country: US (occurrence: US)
  Receive Date: 20181207
  Receipt Date: 20181207
  Transmission Date: 20190205
  Serious: No
  Sender: FDA-Public Use
  Company Number: None

PATIENT
  Age: 16 Year
  Sex: Female
  Weight: 58.5 kg

DRUGS (1)
  1. METHYLPHENIDATE HCL ER 18MG TBCR [Suspect]
     Active Substance: METHYLPHENIDATE HYDROCHLORIDE
     Indication: ATTENTION DEFICIT/HYPERACTIVITY DISORDER
     Dosage: ?          QUANTITY:30 TABLET(S);?
     Route: 048
     Dates: start: 20181015, end: 20181017

REACTIONS (3)
  - Crying [None]
  - Therapeutic response changed [None]
  - Depressed mood [None]

NARRATIVE: CASE EVENT DATE: 20181015
